FAERS Safety Report 17029725 (Version 1)
Quarter: 2019Q4

REPORT INFORMATION
  Report Type: Spontaneous
  Country: US (occurrence: US)
  Receive Date: 20191114
  Receipt Date: 20191114
  Transmission Date: 20200122
  Serious: No
  Sender: FDA-Public Use
  Company Number: US-TEVA-2019-US-1135405

PATIENT
  Sex: Female

DRUGS (2)
  1. CLONAZEPAM-TEVA [Suspect]
     Active Substance: CLONAZEPAM
     Indication: BINGE EATING
  2. CLONAZEPAM-TEVA [Suspect]
     Active Substance: CLONAZEPAM
     Indication: PANIC DISORDER
     Dosage: DOSE STRENGTH:  1
     Route: 065
     Dates: start: 20191014

REACTIONS (1)
  - Drug ineffective [Unknown]
